FAERS Safety Report 4674400-9 (Version None)
Quarter: 2005Q2

REPORT INFORMATION
  Report Type: 
  Country: None (occurrence: None)
  Receive Date: 20050524
  Receipt Date: 20050512
  Transmission Date: 20051028
  Serious: Yes (Other)
  Sender: FDA-Public Use
  Company Number: 2005075726

PATIENT
  Age: 75 Year
  Sex: Male
  Weight: 76.2043 kg

DRUGS (8)
  1. CLINDAMYCIN HYDROCHLORIDE [Suspect]
     Indication: INFECTION
     Dosage: 600 MG (150 MG, 4 IN 1 D), ORAL
     Route: 048
     Dates: start: 20050303, end: 20050311
  2. METRONIDAZOLE [Suspect]
     Indication: DIARRHOEA
  3. ISOSORBIDE DINITRATE [Concomitant]
  4. NORVASC [Concomitant]
  5. BENICAR [Concomitant]
  6. SUCRALFATE [Concomitant]
  7. TOPROL-XL [Concomitant]
  8. NEXIUM [Concomitant]

REACTIONS (5)
  - ABDOMINAL PAIN [None]
  - ABNORMAL FAECES [None]
  - DIARRHOEA [None]
  - HAEMATOCHEZIA [None]
  - HYPOTHYROIDISM [None]
